FAERS Safety Report 9718129 (Version 1)
Quarter: 2013Q4

REPORT INFORMATION
  Report Type: Not Available
  Country: US (occurrence: US)
  Receive Date: 20131125
  Receipt Date: 20131125
  Transmission Date: 20140711
  Serious: No
  Sender: FDA-Public Use
  Company Number: US-VIVUS-2013V1000499

PATIENT
  Age: 45 Year
  Sex: Female
  Weight: 78.54 kg

DRUGS (2)
  1. QSYMIA 3.75MG/23MG [Suspect]
     Indication: WEIGHT DECREASED
     Route: 048
     Dates: start: 20130626, end: 20130630
  2. QSYMIA 3.75MG/23MG [Suspect]
     Route: 048
     Dates: start: 20130701

REACTIONS (3)
  - Mood swings [Not Recovered/Not Resolved]
  - Anger [Not Recovered/Not Resolved]
  - Drug dose omission [Recovered/Resolved]
